FAERS Safety Report 9476671 (Version 2)
Quarter: 2013Q3

REPORT INFORMATION
  Report Type: Spontaneous
  Country: US (occurrence: US)
  Receive Date: 20130826
  Receipt Date: 20130826
  Transmission Date: 20140515
  Serious: No
  Sender: FDA-Public Use
  Company Number: US-BRISTOL-MYERS SQUIBB COMPANY-18930081

PATIENT
  Age: 44 Year
  Sex: Female
  Weight: 68.03 kg

DRUGS (2)
  1. KENALOG INJ [Suspect]
     Indication: UPPER RESPIRATORY TRACT INFECTION
     Dates: start: 20130118
  2. DULERA [Concomitant]
     Route: 055
     Dates: start: 20120823

REACTIONS (2)
  - Injection site atrophy [Unknown]
  - Scab [Recovered/Resolved]
